FAERS Safety Report 4314687-5 (Version None)
Quarter: 2004Q1

REPORT INFORMATION
  Report Type: 
  Country: None (occurrence: None)
  Receive Date: 20040310
  Receipt Date: 20040301
  Transmission Date: 20041129
  Serious: Yes (Other)
  Sender: FDA-Public Use
  Company Number: PHNR2004AU00710

PATIENT
  Age: 23 Year
  Sex: Male
  Weight: 84 kg

DRUGS (7)
  1. SANDIMMUNE [Suspect]
     Indication: CROHN'S DISEASE
     Route: 042
     Dates: start: 20010901, end: 20010901
  2. SANDIMMUNE [Suspect]
     Route: 042
     Dates: start: 20020701, end: 20020701
  3. SANDIMMUNE [Suspect]
     Dosage: 300 MG, QD
     Route: 042
     Dates: start: 20020806, end: 20020812
  4. AZATHIOPRINE [Concomitant]
     Indication: CROHN'S DISEASE
     Dosage: 150 MG, QD
  5. MESALAZINE [Concomitant]
     Indication: CROHN'S DISEASE
     Dosage: 1.5 G, QD
  6. PREDNISOLONE [Concomitant]
     Indication: CROHN'S DISEASE
     Dosage: 250 MG, QD
  7. HYDROCORTISONE [Concomitant]
     Indication: CROHN'S DISEASE
     Dosage: 400 MG, QD
     Route: 042
     Dates: start: 20020806, end: 20020820

REACTIONS (7)
  - ARRHYTHMIA [None]
  - ATRIAL FIBRILLATION [None]
  - ATRIAL FLUTTER [None]
  - FLUSHING [None]
  - PALPITATIONS [None]
  - RASH MACULO-PAPULAR [None]
  - SINUS TACHYCARDIA [None]
